FAERS Safety Report 8484252-7 (Version None)
Quarter: 2012Q3

REPORT INFORMATION
  Report Type: 
  Country: None (occurrence: None)
  Receive Date: 20120703
  Receipt Date: 20120625
  Transmission Date: 20120928
  Serious: Yes (Hospitalization)
  Sender: FDA-Public Use
  Company Number: US-JNJFOC-20120613855

PATIENT
  Sex: Female
  Weight: 35 kg

DRUGS (2)
  1. REMICADE [Suspect]
     Indication: COLITIS ULCERATIVE
     Route: 042
     Dates: start: 20080411
  2. HUMIRA [Concomitant]
     Indication: COLITIS ULCERATIVE
     Dates: start: 20120109

REACTIONS (1)
  - COLITIS ULCERATIVE [None]
